FAERS Safety Report 6773138-1 (Version None)
Quarter: 2010Q2

REPORT INFORMATION
  Report Type: 
  Country: None (occurrence: None)
  Receive Date: 20100616
  Receipt Date: 20091001
  Transmission Date: 20101027
  Serious: No
  Sender: FDA-Public Use
  Company Number: US-TYCO HEALTHCARE/MALLINCKRODT-T200901837

PATIENT
  Age: 75 Year
  Sex: Female
  Weight: 74.376 kg

DRUGS (10)
  1. ULTRATAG [Suspect]
     Indication: RADIOISOTOPE SCAN
     Dosage: UNK
     Dates: start: 20090911, end: 20090911
  2. ULTRA-TECHNEKOW [Concomitant]
     Indication: RADIOISOTOPE SCAN
     Dosage: 22 MCI, SINGLE
     Route: 042
     Dates: start: 20090911, end: 20090911
  3. DARVOCET [Concomitant]
     Dosage: UNK
     Route: 048
  4. LIPITOR [Concomitant]
     Indication: HYPERLIPIDAEMIA
     Dosage: UNK
     Route: 048
  5. HYDROCHLOROTHIAZIDE [Concomitant]
     Dosage: UNK
     Route: 048
  6. LODINE [Concomitant]
     Dosage: UNK
     Route: 048
  7. ASPIRIN [Concomitant]
     Dosage: 1/2 TAB
     Route: 048
  8. PROTONIX [Concomitant]
  9. DETROL                             /01350201/ [Concomitant]
  10. CARAFATE [Concomitant]

REACTIONS (1)
  - DRUG INEFFECTIVE [None]
